FAERS Safety Report 15666270 (Version 2)
Quarter: 2018Q4

REPORT INFORMATION
  Report Type: Spontaneous
  Country: US (occurrence: US)
  Receive Date: 20181128
  Receipt Date: 20181227
  Transmission Date: 20190205
  Serious: No
  Sender: FDA-Public Use
  Company Number: US-ASTRAZENECA-2018SF44277

PATIENT
  Sex: Male
  Weight: 68 kg

DRUGS (2)
  1. PROAIR HFA [Concomitant]
     Active Substance: ALBUTEROL SULFATE
     Indication: ILL-DEFINED DISORDER
     Dosage: 1 PUFF A DAY, PRN
     Route: 055
  2. TUDORZA PRESSAIR [Suspect]
     Active Substance: ACLIDINIUM BROMIDE
     Indication: CHRONIC OBSTRUCTIVE PULMONARY DISEASE
     Route: 055

REACTIONS (6)
  - Incorrect dose administered by device [Unknown]
  - Intentional device misuse [Unknown]
  - Memory impairment [Unknown]
  - Device malfunction [Unknown]
  - Feeling abnormal [Unknown]
  - Product dose omission [Unknown]
